FAERS Safety Report 4785939-X (Version None)
Quarter: 2005Q4

REPORT INFORMATION
  Report Type: 
  Country: None (occurrence: None)
  Receive Date: 20051003
  Receipt Date: 20050721
  Transmission Date: 20060501
  Serious: Yes (Life-Threatening)
  Sender: FDA-Public Use
  Company Number: KR-SANOFI-SYNTHELABO-A01200505039

PATIENT
  Sex: Female
  Weight: 49.3 kg

DRUGS (7)
  1. ELOXATIN [Suspect]
     Indication: COLON CANCER
     Route: 042
     Dates: start: 20050716, end: 20050716
  2. FLUOROURACIL [Concomitant]
     Indication: COLON CANCER
     Dosage: BOLUS 400, INFUSION 600 MG/M2 - 1470 MG FOR 2 DAYS
     Dates: start: 20050716, end: 20050717
  3. LEUCOVORIN [Concomitant]
     Indication: COLON CANCER
     Dates: start: 20050716, end: 20050717
  4. NASEA [Concomitant]
     Indication: DRUG THERAPY
     Route: 042
     Dates: start: 20050716, end: 20050716
  5. NASEA [Concomitant]
     Route: 048
     Dates: start: 20050716, end: 20050717
  6. KETOPROFEN [Concomitant]
     Indication: SHOULDER PAIN
     Route: 061
     Dates: start: 20050717, end: 20050717
  7. VALENTAC [Concomitant]
     Indication: PYREXIA
     Route: 042
     Dates: start: 20050716, end: 20050716

REACTIONS (10)
  - DIZZINESS [None]
  - HAEMOLYSIS [None]
  - HAEMOLYTIC ANAEMIA [None]
  - HYPERHIDROSIS [None]
  - HYPOTENSION [None]
  - IMMUNE SYSTEM DISORDER [None]
  - MELAENA [None]
  - PANCYTOPENIA [None]
  - PETECHIAE [None]
  - PYREXIA [None]
